FAERS Safety Report 4957993-3 (Version None)
Quarter: 2006Q1

REPORT INFORMATION
  Report Type: 
  Country: None (occurrence: None)
  Receive Date: 20060330
  Receipt Date: 20051024
  Transmission Date: 20060701
  Serious: Yes (Hospitalization)
  Sender: FDA-Public Use
  Company Number: US-BRISTOL-MYERS SQUIBB COMPANY-13156146

PATIENT
  Age: 26 Year
  Sex: Female
  Weight: 45 kg

DRUGS (4)
  1. REYATAZ [Suspect]
     Indication: HIV INFECTION
     Dates: start: 20051010, end: 20051017
  2. EPZICOM [Concomitant]
  3. NORVIR [Concomitant]
  4. DAPSONE [Concomitant]

REACTIONS (6)
  - DIARRHOEA [None]
  - FATIGUE [None]
  - HEADACHE [None]
  - JAUNDICE [None]
  - NAUSEA [None]
  - PHOTOSENSITIVITY REACTION [None]
